FAERS Safety Report 10230955 (Version 1)
Quarter: 2014Q2

REPORT INFORMATION
  Report Type: Spontaneous
  Country: US (occurrence: None)
  Receive Date: 20140610
  Receipt Date: 20140610
  Transmission Date: 20141212
  Serious: Yes (Disabling)
  Sender: FDA-Public Use
  Company Number: None

PATIENT
  Age: 32 Year
  Sex: Female
  Weight: 79.38 kg

DRUGS (1)
  1. NEXPLANON [Suspect]

REACTIONS (10)
  - Diarrhoea [None]
  - Haemorrhage [None]
  - Anxiety [None]
  - Depression [None]
  - Tremor [None]
  - Vomiting [None]
  - Insomnia [None]
  - Decreased appetite [None]
  - Weight decreased [None]
  - Fatigue [None]
